FAERS Safety Report 13939399 (Version 2)
Quarter: 2017Q3

REPORT INFORMATION
  Report Type: Report from Study
  Country: US (occurrence: US)
  Receive Date: 20170906
  Receipt Date: 20170928
  Transmission Date: 20171127
  Serious: Yes (Other)
  Sender: FDA-Public Use
  Company Number: US-TORRENT-00003351

PATIENT
  Age: 28 Year
  Sex: Female

DRUGS (4)
  1. CLONAZEPAM. [Concomitant]
     Active Substance: CLONAZEPAM
  2. TOPIRAMATE. [Concomitant]
     Active Substance: TOPIRAMATE
  3. LAMOTRIGINE. [Suspect]
     Active Substance: LAMOTRIGINE
  4. LEVETIRACETAM. [Concomitant]
     Active Substance: LEVETIRACETAM

REACTIONS (4)
  - Toxicity to various agents [Unknown]
  - Overdose [Unknown]
  - Abnormal behaviour [Unknown]
  - Seizure [Unknown]
